FAERS Safety Report 13581625 (Version 1)
Quarter: 2017Q2

REPORT INFORMATION
  Report Type: Spontaneous
  Country: US (occurrence: US)
  Receive Date: 20170525
  Receipt Date: 20170525
  Transmission Date: 20170830
  Serious: Yes (Disabling)
  Sender: FDA-Public Use
  Company Number: US-SA-2017SA087704

PATIENT
  Age: 69 Year
  Sex: Male

DRUGS (1)
  1. LANTUS [Suspect]
     Active Substance: INSULIN GLARGINE
     Indication: TYPE 2 DIABETES MELLITUS
     Dosage: TITRATING DOSE: 55-60 U
     Route: 051

REACTIONS (7)
  - Malaise [Unknown]
  - Hypoacusis [Unknown]
  - Head injury [Unknown]
  - Wrist fracture [Unknown]
  - Incorrect product storage [Unknown]
  - Mental disability [Unknown]
  - Blood glucose increased [Unknown]

NARRATIVE: CASE EVENT DATE: 20170509
